FAERS Safety Report 5678314-7 (Version None)
Quarter: 2008Q1

REPORT INFORMATION
  Report Type: 
  Country: None (occurrence: None)
  Receive Date: 20080320
  Receipt Date: 20080314
  Transmission Date: 20080703
  Serious: Yes (Other)
  Sender: FDA-Public Use
  Company Number: S08-USA-00024-01

PATIENT
  Age: 27 Year
  Sex: Female
  Weight: 99.7913 kg

DRUGS (7)
  1. LEXAPRO [Suspect]
     Indication: ANXIETY
     Dosage: 20 MG QD;PO
     Route: 048
     Dates: start: 20060101
  2. LEXAPRO [Suspect]
     Indication: ANXIETY
     Dosage: 10 MG QD;PO
     Route: 048
     Dates: start: 20060501, end: 20060101
  3. REBIF [Suspect]
     Indication: MULTIPLE SCLEROSIS
     Dosage: 44 MCG TIW
     Dates: start: 20060306, end: 20070901
  4. REBIF [Suspect]
     Indication: MULTIPLE SCLEROSIS
     Dosage: 44 MCG TIW
     Dates: start: 20071101
  5. KLONOPIN [Suspect]
     Indication: ANXIETY
  6. ATENOLOL [Concomitant]
  7. KLONOPIN [Concomitant]

REACTIONS (3)
  - ABORTION SPONTANEOUS [None]
  - DRUG EXPOSURE DURING PREGNANCY [None]
  - PREGNANCY [None]
